FAERS Safety Report 11577750 (Version 1)
Quarter: 2015Q3

REPORT INFORMATION
  Report Type: Spontaneous
  Country: US (occurrence: US)
  Receive Date: 20150916
  Receipt Date: 20150916
  Transmission Date: 20151125
  Serious: No
  Sender: FDA-Public Use
  Company Number: US-ELI_LILLY_AND_COMPANY-US201306006091

PATIENT
  Sex: Female

DRUGS (1)
  1. HUMALOG [Suspect]
     Active Substance: INSULIN LISPRO

REACTIONS (6)
  - Blood glucose increased [Unknown]
  - Infusion site irritation [Recovered/Resolved]
  - Infusion site haemorrhage [Unknown]
  - Pollakiuria [Unknown]
  - Dry mouth [Unknown]
  - Scar [Unknown]
